FAERS Safety Report 15610268 (Version 1)
Quarter: 2018Q4

REPORT INFORMATION
  Report Type: Spontaneous
  Country: US (occurrence: US)
  Receive Date: 20181113
  Receipt Date: 20181113
  Transmission Date: 20190205
  Serious: No
  Sender: FDA-Public Use
  Company Number: US-ROCHE-2068149

PATIENT
  Sex: Female

DRUGS (2)
  1. TAMIFLU [Suspect]
     Active Substance: OSELTAMIVIR PHOSPHATE
     Indication: INFLUENZA
     Dosage: WITH BREAKFAST AND WITH DINNER ;ONGOING: NO
     Route: 048
  2. FLU SHOT [Concomitant]
     Active Substance: INFLUENZA VIRUS VACCINE
     Route: 065
     Dates: start: 201708

REACTIONS (4)
  - Cough [Recovering/Resolving]
  - Emotional disorder [Unknown]
  - Confusional state [Unknown]
  - Disorientation [Unknown]
